FAERS Safety Report 8477890-9 (Version None)
Quarter: 2012Q2

REPORT INFORMATION
  Report Type: 
  Country: None (occurrence: None)
  Receive Date: 20120618
  Receipt Date: 20120604
  Transmission Date: 20120825
  Serious: Yes (Hospitalization)
  Sender: FDA-Public Use
  Company Number: DSA_57761_2012

PATIENT
  Age: 77 Year
  Sex: Female

DRUGS (11)
  1. TROSPIUM CHLORIDE [Concomitant]
  2. ATORVASTATIN [Concomitant]
  3. DEBRIDAT /00465202/ [Concomitant]
  4. TAREG (TAREG-VALSARTAN) (NOT SPECIFIED) [Suspect]
     Indication: PRODUCT USED FOR UNKNOWN INDICATION
     Dosage: (160 MG QD ORAL)
     Route: 048
     Dates: start: 20000101, end: 20120427
  5. FORLAX /00754501/ [Concomitant]
  6. DILTIAZEM HYDROCHLORIDE [Suspect]
     Indication: PRODUCT USED FOR UNKNOWN INDICATION
     Dosage: (300 MG QD ORAL)
     Route: 048
     Dates: start: 19990101, end: 20120427
  7. FOLIC ACID [Concomitant]
  8. FUROSEMIDE [Suspect]
     Indication: PRODUCT USED FOR UNKNOWN INDICATION
     Dosage: (40 MG QD) (40 MG QD)
     Dates: end: 20120430
  9. FUROSEMIDE [Suspect]
     Indication: PRODUCT USED FOR UNKNOWN INDICATION
     Dosage: (40 MG QD) (40 MG QD)
     Dates: start: 20120301, end: 20120427
  10. ALDACTONE [Suspect]
     Indication: PRODUCT USED FOR UNKNOWN INDICATION
     Dosage: (50 MG QD ORAL)
     Route: 048
     Dates: start: 20000101, end: 20120427
  11. ZOLPIDEM [Concomitant]

REACTIONS (3)
  - HYPERKALAEMIA [None]
  - RENAL FAILURE ACUTE [None]
  - SINUS BRADYCARDIA [None]
